FAERS Safety Report 7651854-7 (Version None)
Quarter: 2011Q3

REPORT INFORMATION
  Report Type: 
  Country: None (occurrence: None)
  Receive Date: 20110803
  Receipt Date: 20110726
  Transmission Date: 20111222
  Serious: Yes (Death)
  Sender: FDA-Public Use
  Company Number: US-BIOGENIDEC-2011BI008882

PATIENT
  Age: 52 Year
  Sex: Male

DRUGS (2)
  1. BETASERON [Concomitant]
     Indication: MULTIPLE SCLEROSIS
  2. AVONEX [Suspect]
     Indication: MULTIPLE SCLEROSIS
     Route: 030
     Dates: start: 19990701, end: 20050131

REACTIONS (3)
  - FAILURE TO THRIVE [None]
  - CARDIAC ARREST [None]
  - MULTIPLE SCLEROSIS [None]
